FAERS Safety Report 18401079 (Version 1)
Quarter: 2020Q4

REPORT INFORMATION
  Report Type: Spontaneous
  Country: US (occurrence: US)
  Receive Date: 20201019
  Receipt Date: 20201019
  Transmission Date: 20210114
  Serious: No
  Sender: FDA-Public Use
  Company Number: US-BAYER-2020-223526

PATIENT
  Age: 28 Year
  Sex: Male

DRUGS (1)
  1. CLARITIN [Suspect]
     Active Substance: LORATADINE
     Dosage: 1 DF, QD
     Dates: start: 20201011, end: 20201015

REACTIONS (2)
  - Drug ineffective [Unknown]
  - Pruritus [None]

NARRATIVE: CASE EVENT DATE: 202010
